FAERS Safety Report 8425005-5 (Version None)
Quarter: 2012Q2

REPORT INFORMATION
  Report Type: 
  Country: None (occurrence: None)
  Receive Date: 20120605
  Receipt Date: 20120605
  Transmission Date: 20120825
  Serious: Yes (Disabling)
  Sender: FDA-Public Use
  Company Number: None

PATIENT
  Age: 20 Year
  Sex: Male
  Weight: 65.7716 kg

DRUGS (1)
  1. LATUDA [Suspect]
     Indication: BIPOLAR DISORDER
     Dosage: 40MG DAILY PO
     Route: 048
     Dates: start: 20120414, end: 20120527

REACTIONS (3)
  - HYPOAESTHESIA [None]
  - MUSCLE TWITCHING [None]
  - PAIN IN JAW [None]
